FAERS Safety Report 8393587-8 (Version None)
Quarter: 2012Q2

REPORT INFORMATION
  Report Type: 
  Country: None (occurrence: None)
  Receive Date: 20120530
  Receipt Date: 20120521
  Transmission Date: 20120825
  Serious: Yes (Other)
  Sender: FDA-Public Use
  Company Number: US-ASTRAZENECA-2011SE32258

PATIENT
  Age: 55 Year
  Sex: Female

DRUGS (16)
  1. PREVACID [Concomitant]
     Dates: start: 20080421, end: 20080509
  2. NEXIUM [Suspect]
     Indication: GASTROOESOPHAGEAL REFLUX DISEASE
     Dosage: EVERYDAY
     Route: 048
     Dates: start: 20020101, end: 20110101
  3. BISMUTH SUBSALICYLATE [Concomitant]
  4. ALKA SELTZER [Concomitant]
  5. FENOFIBRATE [Concomitant]
  6. NEXIUM [Suspect]
     Dosage: 40 MG DAILY ONE HOUR BEFORE BREAKFAST
     Route: 048
     Dates: start: 20100409
  7. NEXIUM [Suspect]
     Dosage: 40 MG DAILY ONE HOUR BEFORE BREAKFAST
     Route: 048
     Dates: start: 20100409
  8. NEXIUM [Suspect]
     Indication: DYSPEPSIA
     Dosage: EVERYDAY
     Route: 048
     Dates: start: 20020101, end: 20110101
  9. NEXIUM [Suspect]
     Route: 048
     Dates: start: 20080509
  10. NEXIUM [Suspect]
     Route: 048
     Dates: start: 20080509
  11. FLEXASE [Concomitant]
  12. PEPCID [Concomitant]
     Dosage: ONCE OR TWICE A MONTH
  13. ESTRADIOL [Concomitant]
  14. KOPIDEX [Concomitant]
     Route: 048
  15. TYLENOL [Concomitant]
     Dosage: BID
  16. LEXAPRO [Concomitant]
     Dosage: 10 MG QAM

REACTIONS (4)
  - FALL [None]
  - LOWER LIMB FRACTURE [None]
  - TIBIA FRACTURE [None]
  - JOINT INJURY [None]
